FAERS Safety Report 9513484 (Version 1)
Quarter: 2013Q3

REPORT INFORMATION
  Report Type: Spontaneous
  Country: US (occurrence: US)
  Receive Date: 20130910
  Receipt Date: 20130910
  Transmission Date: 20140515
  Serious: No
  Sender: FDA-Public Use
  Company Number: US-TARO-2013P1005061

PATIENT
  Age: 94 Year
  Sex: Female
  Weight: 64.41 kg

DRUGS (9)
  1. WARFARIN SODIUM TABLETS USP 5MG [Suspect]
     Route: 048
  2. WARFARIN SODIUM TABLETS USP 5MG [Suspect]
     Route: 048
  3. VERAPAMIL [Concomitant]
  4. EFFEXOR [Concomitant]
  5. ARICEPT [Concomitant]
  6. HCTZ [Concomitant]
  7. PRAVASTATIN [Concomitant]
  8. REMERON [Concomitant]
  9. UNSPECIFIED ^BLADDER PILL^ [Concomitant]

REACTIONS (8)
  - Dry skin [Not Recovered/Not Resolved]
  - Skin exfoliation [Not Recovered/Not Resolved]
  - Blood pressure decreased [Not Recovered/Not Resolved]
  - Blood pressure fluctuation [Not Recovered/Not Resolved]
  - Lip dry [Not Recovered/Not Resolved]
  - Lip exfoliation [Not Recovered/Not Resolved]
  - Oral mucosal exfoliation [Not Recovered/Not Resolved]
  - Candida infection [Unknown]
